FAERS Safety Report 20468510 (Version 1)
Quarter: 2022Q1

REPORT INFORMATION
  Report Type: Report from Study
  Country: CA (occurrence: CA)
  Receive Date: 20220214
  Receipt Date: 20220214
  Transmission Date: 20220423
  Serious: Yes (Other)
  Sender: FDA-Public Use
  Company Number: CA-BAYER-2022A017508

PATIENT
  Age: 61 Year
  Sex: Male
  Weight: 76 kg

DRUGS (6)
  1. CIPROFLOXACIN [Suspect]
     Active Substance: CIPROFLOXACIN
     Indication: Product used for unknown indication
     Route: 048
  2. OMALIZUMAB [Suspect]
     Active Substance: OMALIZUMAB
     Indication: Mastocytosis
     Route: 048
  3. MONTELUKAST SODIUM [Suspect]
     Active Substance: MONTELUKAST SODIUM
  4. KETOTIFEN FUMARATE [Concomitant]
     Active Substance: KETOTIFEN FUMARATE
  5. MONTELUKAST [Concomitant]
     Active Substance: MONTELUKAST SODIUM
  6. AERIUS [Concomitant]

REACTIONS (7)
  - Weight decreased [Recovered/Resolved]
  - Blood pressure decreased [None]
  - Vertigo positional [None]
  - Diarrhoea [None]
  - Drug hypersensitivity [None]
  - Vomiting [None]
  - Product use in unapproved indication [None]
